FAERS Safety Report 8887339 (Version 2)
Quarter: 2014Q2

REPORT INFORMATION
  Report Type: Spontaneous
  Country: US (occurrence: US)
  Receive Date: 20121105
  Receipt Date: 20131024
  Transmission Date: 20141212
  Serious: No
  Sender: FDA-Public Use
  Company Number: US-PFIZER INC-2012272700

PATIENT
  Age: 45 Year
  Sex: Female
  Weight: 47.62 kg

DRUGS (1)
  1. PREMPRO [Suspect]
     Indication: MENOPAUSE
     Dosage: 1 DF (0.3/1.5 MG), 1X/DAY
     Route: 048
     Dates: start: 20121022, end: 20121023

REACTIONS (2)
  - Product size issue [Unknown]
  - Dysphagia [Unknown]
